FAERS Safety Report 25009365 (Version 2)
Quarter: 2025Q1

REPORT INFORMATION
  Report Type: Spontaneous
  Country: US (occurrence: US)
  Receive Date: 20250225
  Receipt Date: 20250307
  Transmission Date: 20250409
  Serious: Yes (Other)
  Sender: PFIZER
  Company Number: US-PFIZER INC-202500041511

PATIENT
  Age: 73 Year
  Sex: Female

DRUGS (1)
  1. XELJANZ XR [Suspect]
     Active Substance: TOFACITINIB CITRATE
     Indication: Rheumatoid arthritis
     Dosage: 11 MG, 1X/DAY (TAKE 1 (ONE) TABLET DAILY)
     Route: 048

REACTIONS (7)
  - Rheumatoid arthritis [Unknown]
  - Dizziness [Unknown]
  - Hypoaesthesia [Unknown]
  - Back pain [Unknown]
  - Nerve compression [Unknown]
  - Cough [Unknown]
  - Condition aggravated [Unknown]
